FAERS Safety Report 12867275 (Version 4)
Quarter: 2019Q1

REPORT INFORMATION
  Report Type: Spontaneous
  Country: JP (occurrence: JP)
  Receive Date: 20161020
  Receipt Date: 20190305
  Transmission Date: 20190417
  Serious: Yes (Life-Threatening)
  Sender: FDA-Public Use
  Company Number: JP-SA-2016SA190525

PATIENT
  Age: 77 Year
  Sex: Male
  Weight: 77 kg

DRUGS (17)
  1. ELPLAT [Suspect]
     Active Substance: OXALIPLATIN
     Indication: COLON CANCER
     Dosage: 170 MG, QD (90.2 MG/M2)
     Route: 041
     Dates: start: 20111102, end: 20121104
  2. ELPLAT [Suspect]
     Active Substance: OXALIPLATIN
     Dosage: 100 MG, QD
     Route: 041
     Dates: start: 20120411, end: 20120411
  3. CALCIUM LEVOFOLINATE [Concomitant]
     Active Substance: LEVOLEUCOVORIN CALCIUM
     Dosage: 400 MG/BODY (212.2 MG/M2)
     Dates: start: 20111102, end: 20111102
  4. ELPLAT [Suspect]
     Active Substance: OXALIPLATIN
     Dosage: 130 MG, QD(69 MG/M2)
     Route: 041
     Dates: start: 20111102, end: 20121104
  5. ELPLAT [Suspect]
     Active Substance: OXALIPLATIN
     Dosage: 100 MG, QD
     Route: 041
     Dates: start: 20120201, end: 20120201
  6. FLUOROURACIL. [Concomitant]
     Active Substance: FLUOROURACIL
     Dosage: 650 MG/BODY (344.8 MG/M2)
     Route: 040
     Dates: start: 20111130, end: 20111130
  7. CALCIUM LEVOFOLINATE [Concomitant]
     Active Substance: LEVOLEUCOVORIN CALCIUM
     Dosage: UNK UNK,QCY
     Route: 065
  8. ELPLAT [Suspect]
     Active Substance: OXALIPLATIN
     Dosage: 100 MG, QD
     Route: 041
     Dates: start: 20120314, end: 20120314
  9. ELPLAT [Suspect]
     Active Substance: OXALIPLATIN
     Dosage: 100 MG, QD
     Route: 041
     Dates: start: 20120118, end: 20120118
  10. ELPLAT [Suspect]
     Active Substance: OXALIPLATIN
     Dosage: 100 MG, QD
     Route: 041
     Dates: start: 20120229, end: 20120229
  11. FLUOROURACIL. [Concomitant]
     Active Substance: FLUOROURACIL
     Dosage: 4800 MG/BODY/D1-2 (2546.4 MG/M2/D1-2) AS CONTINUOUS INFUSION
     Dates: start: 20111102, end: 20111102
  12. FLUOROURACIL. [Concomitant]
     Active Substance: FLUOROURACIL
     Dosage: 4000 MG/BODY/D1-2 (2122 MG/M2/D1-2).CONTINUOUS INFUSION
     Dates: start: 20111130, end: 20111130
  13. FLUOROURACIL. [Concomitant]
     Active Substance: FLUOROURACIL
     Dosage: 500 MG/BODY (265.3 MG/M2)
     Dates: start: 20120104, end: 20120104
  14. ELPLAT [Suspect]
     Active Substance: OXALIPLATIN
     Dosage: 100 MG, QD (53.1 MG/M2)
     Route: 041
     Dates: start: 20111102, end: 20121104
  15. CALCIUM LEVOFOLINATE [Concomitant]
     Active Substance: LEVOLEUCOVORIN CALCIUM
     Dosage: UNK
     Dates: start: 20111130, end: 20111130
  16. ELPLAT [Suspect]
     Active Substance: OXALIPLATIN
     Dosage: 100 MG, QD
     Route: 041
     Dates: start: 20120215, end: 20120215
  17. FLUOROURACIL. [Concomitant]
     Active Substance: FLUOROURACIL
     Dosage: 800 MG/BODY (424.4 MG/M2)
     Route: 040
     Dates: start: 20111102, end: 20111102

REACTIONS (5)
  - Neutrophil count decreased [Recovering/Resolving]
  - Varices oesophageal [Recovering/Resolving]
  - Platelet count decreased [Recovering/Resolving]
  - White blood cell count decreased [Recovering/Resolving]
  - Portal vein flow decreased [Unknown]

NARRATIVE: CASE EVENT DATE: 20111130
